FAERS Safety Report 22246601 (Version 2)
Quarter: 2023Q2

REPORT INFORMATION
  Report Type: Spontaneous
  Country: US (occurrence: US)
  Receive Date: 20230424
  Receipt Date: 20230510
  Transmission Date: 20230721
  Serious: Yes (Other)
  Sender: FDA-Public Use
  Company Number: US-BRISTOL-MYERS SQUIBB COMPANY-2023-057877

PATIENT
  Age: 76 Year
  Sex: Male
  Weight: 41.73 kg

DRUGS (1)
  1. LENALIDOMIDE [Suspect]
     Active Substance: LENALIDOMIDE
     Indication: Plasma cell myeloma
     Dosage: TAKE 1 CAPSULE BY MOUTH EVERY DAY ON
     Route: 048
     Dates: start: 20221028, end: 20230504

REACTIONS (2)
  - Product dose omission issue [Unknown]
  - Eye disorder [Unknown]
